FAERS Safety Report 13770170 (Version 1)
Quarter: 2017Q3

REPORT INFORMATION
  Report Type: Spontaneous
  Country: US (occurrence: US)
  Receive Date: 20170719
  Receipt Date: 20170719
  Transmission Date: 20171127
  Serious: No
  Sender: FDA-Public Use
  Company Number: None

PATIENT
  Age: 34 Year
  Sex: Male

DRUGS (8)
  1. BARACLUDE [Concomitant]
     Active Substance: ENTECAVIR
  2. MULTIVITE [Concomitant]
     Active Substance: VITAMINS
  3. PROGRAF [Concomitant]
     Active Substance: TACROLIMUS\TACROLIMUS ANHYDROUS
  4. URSODIOL ALENDRONATE [Concomitant]
  5. HUMIRA [Concomitant]
     Active Substance: ADALIMUMAB
  6. UCERIS [Concomitant]
     Active Substance: BUDESONIDE
  7. OCALIVA [Suspect]
     Active Substance: OBETICHOLIC ACID
     Indication: BILIARY CIRRHOSIS
     Route: 048
     Dates: start: 20170620
  8. PROTONIX [Concomitant]
     Active Substance: PANTOPRAZOLE SODIUM

REACTIONS (1)
  - Diarrhoea [None]

NARRATIVE: CASE EVENT DATE: 201707
